FAERS Safety Report 8895261 (Version 1)
Quarter: 2012Q4

REPORT INFORMATION
  Report Type: 
  Country: US (occurrence: US)
  Receive Date: 20121107
  Receipt Date: 20121107
  Transmission Date: 20130627
  Serious: No
  Sender: FDA-Public Use
  Company Number: US-AMGEN-USASP2011059929

PATIENT
  Age: 65 Year
  Sex: Female
  Weight: 70.75 kg

DRUGS (10)
  1. ENBREL [Suspect]
     Indication: RHEUMATOID ARTHRITIS
     Dosage: 50 mg, qwk
     Dates: start: 20061001
  2. SULFASALAZINE [Concomitant]
  3. OMEPRAZOLE [Concomitant]
  4. SYNTHROID [Concomitant]
  5. TOPROL [Concomitant]
  6. LEXAPRO [Concomitant]
  7. MAXIDENE [Concomitant]
  8. COZAAR [Concomitant]
  9. ALLOPURINOL [Concomitant]
  10. PLAQUENIL                          /00072602/ [Concomitant]

REACTIONS (2)
  - Arthralgia [Recovering/Resolving]
  - Musculoskeletal pain [Recovering/Resolving]
